FAERS Safety Report 18451942 (Version 3)
Quarter: 2021Q1

REPORT INFORMATION
  Report Type: Report from Study
  Country: US (occurrence: US)
  Receive Date: 20201102
  Receipt Date: 20210322
  Transmission Date: 20210419
  Serious: Yes (Other)
  Sender: FDA-Public Use
  Company Number: NVSC2020US287823

PATIENT
  Sex: Male

DRUGS (2)
  1. COSENTYX [Suspect]
     Active Substance: SECUKINUMAB
     Indication: PSORIATIC ARTHROPATHY
     Dosage: 150 MG, QMO
     Route: 058
  2. COSENTYX [Suspect]
     Active Substance: SECUKINUMAB
     Dosage: 300 MG, QMO
     Route: 058

REACTIONS (9)
  - Product dose omission issue [Unknown]
  - Psoriatic arthropathy [Unknown]
  - Tenderness [Unknown]
  - Pain of skin [Recovered/Resolved]
  - Arthralgia [Recovering/Resolving]
  - Pain [Unknown]
  - Peripheral swelling [Unknown]
  - Back pain [Recovering/Resolving]
  - Skin lesion [Recovered/Resolved]
